FAERS Safety Report 13572031 (Version 1)
Quarter: 2017Q2

REPORT INFORMATION
  Report Type: Spontaneous
  Country: US (occurrence: US)
  Receive Date: 20170523
  Receipt Date: 20170523
  Transmission Date: 20170830
  Serious: Yes (Hospitalization)
  Sender: FDA-Public Use
  Company Number: None

PATIENT
  Age: 54 Year
  Sex: Female

DRUGS (5)
  1. HEXALEN [Suspect]
     Active Substance: ALTRETAMINE
     Indication: NEOPLASM
     Route: 048
     Dates: start: 20170315
  2. FLOMAX [Concomitant]
     Active Substance: TAMSULOSIN HYDROCHLORIDE
  3. VITAMIN C [Concomitant]
     Active Substance: ASCORBIC ACID
  4. OXYCODONE AND ACETAMINOPHEN [Concomitant]
     Active Substance: ACETAMINOPHEN\OXYCODONE HYDROCHLORIDE
  5. ANTI-DIARRHEAL [Concomitant]
     Active Substance: LOPERAMIDE HYDROCHLORIDE

REACTIONS (1)
  - Hospitalisation [None]
